FAERS Safety Report 8850287 (Version 2)
Quarter: 2012Q4

REPORT INFORMATION
  Report Type: 
  Country: JP (occurrence: JP)
  Receive Date: 20121019
  Receipt Date: 20121120
  Transmission Date: 20130627
  Serious: Yes (Other)
  Sender: FDA-Public Use
  Company Number: JP-PFIZER INC-2012224387

PATIENT
  Age: 65 Year
  Sex: Male
  Weight: 70 kg

DRUGS (8)
  1. LYRICA [Suspect]
     Indication: HYPOESTHESIA
     Dosage: 50 mg, as needed
     Route: 048
     Dates: start: 20120614, end: 20120727
  2. LYRICA [Suspect]
     Indication: NEURALGIA
     Dosage: 75 mg, 1x/day
     Route: 048
     Dates: start: 20120622, end: 20120623
  3. LYRICA [Suspect]
     Indication: FIBROMYALGIA SYNDROME
     Dosage: 75 mg, 1x/day
     Route: 048
     Dates: start: 20120727
  4. JZOLOFT [Concomitant]
     Indication: NEURALGIA
     Dosage: 25 mg, 1x/day
     Route: 048
     Dates: start: 20120614, end: 20120622
  5. RABEPRAZOLE [Concomitant]
     Indication: PROPHYLAXIS
     Dosage: 10 mg, 1x/day
     Route: 048
     Dates: start: 20120614, end: 20120831
  6. DOGMATYL [Concomitant]
     Indication: NEURALGIA
     Dosage: 25 mg, 1x/day
     Route: 048
     Dates: start: 20120622, end: 20120727
  7. REBAMIPIDE [Concomitant]
     Indication: PROPHYLAXIS
     Dosage: 100 mg, 3x/day
     Route: 048
     Dates: start: 20120622, end: 20120831
  8. GABAPEN [Concomitant]
     Indication: NEURALGIA
     Dosage: 300 mg, 1x/day
     Route: 048
     Dates: start: 20120622, end: 20120709

REACTIONS (5)
  - Acute haemorrhagic conjunctivitis [Recovered/Resolved]
  - Drug ineffective [Unknown]
  - Palpitations [Unknown]
  - Hot flush [Unknown]
  - Oedema [Unknown]
